FAERS Safety Report 5732371-8 (Version None)
Quarter: 2008Q2

REPORT INFORMATION
  Report Type: 
  Country: None (occurrence: None)
  Receive Date: 20080508
  Receipt Date: 20080505
  Transmission Date: 20081010
  Serious: Yes (Death)
  Sender: FDA-Public Use
  Company Number: US-ABBOTT-08P-163-0450485-00

PATIENT
  Sex: Female
  Weight: 46.762 kg

DRUGS (19)
  1. ZEMPLAR [Suspect]
     Indication: HYPOPARATHYROIDISM
     Route: 048
     Dates: start: 20051024, end: 20080427
  2. CARVEDILOL [Concomitant]
     Indication: CARDIAC FAILURE
     Route: 048
  3. PANTOPRAZOLE SODIUM [Concomitant]
     Indication: DRUG USE FOR UNKNOWN INDICATION
     Route: 048
  4. ALENDRONATE SODIUM [Concomitant]
     Indication: BONE DISORDER
     Route: 048
  5. EZETIMIBE [Concomitant]
     Indication: BLOOD CHOLESTEROL
     Route: 048
  6. CALCIUM ACETATE [Concomitant]
     Indication: NUTRITIONAL SUPPORT
  7. FUROSEMIDE [Concomitant]
     Indication: CARDIAC FAILURE
     Dosage: 80MG IN AM AND 40MG IN PM
     Route: 048
  8. DOCUSATE SODIUM [Concomitant]
     Indication: GASTROINTESTINAL DISORDER
     Route: 048
  9. SPIRONOLACTONE [Concomitant]
     Indication: DRUG USE FOR UNKNOWN INDICATION
     Route: 048
  10. POTASSIUM CHLORIDE [Concomitant]
     Indication: DRUG USE FOR UNKNOWN INDICATION
  11. ISOSORBIDE DINITRATE [Concomitant]
     Indication: CARDIAC DISORDER
  12. HYDROXYZINE [Concomitant]
     Indication: DRUG USE FOR UNKNOWN INDICATION
  13. ALLOPURINOL [Concomitant]
     Indication: DRUG USE FOR UNKNOWN INDICATION
  14. ACETYLSALICYLIC ACID SRT [Concomitant]
     Indication: CARDIAC DISORDER
  15. NEPHROVITE [Concomitant]
     Indication: VITAMIN SUPPLEMENTATION
  16. LAXATIVES [Concomitant]
     Indication: GASTROINTESTINAL DISORDER
     Dosage: 15ML'S TO 30ML'S DAILY
  17. OXYCODONE HCL [Concomitant]
     Indication: PAIN
  18. PARICALCITOL [Concomitant]
     Indication: RENAL DISORDER
     Dosage: 1MCG 4 DAYS A WEEK
     Route: 048
  19. ZOPANEX [Concomitant]
     Indication: RESPIRATORY THERAPY

REACTIONS (3)
  - ANXIETY [None]
  - CARDIAC FAILURE CONGESTIVE [None]
  - RENAL FAILURE [None]
